FAERS Safety Report 4330346-7 (Version None)
Quarter: 2004Q1

REPORT INFORMATION
  Report Type: 
  Country: None (occurrence: None)
  Receive Date: 20040329
  Receipt Date: 20040318
  Transmission Date: 20041129
  Serious: Yes (Other)
  Sender: FDA-Public Use
  Company Number: 2003034442

PATIENT
  Age: 52 Year
  Sex: Female

DRUGS (6)
  1. ATORVASTATIN (ATORVASTATIN) [Suspect]
     Indication: DYSLIPIDAEMIA
     Dosage: 20 MG DAILY, ORAL
     Route: 048
     Dates: start: 20021001
  2. PROPRANOLOL [Concomitant]
  3. CLONAZEPAM [Concomitant]
  4. ACETYLSALICYLIC ACID SRT [Concomitant]
  5. AMITRIPTYLINE HCL [Concomitant]
  6. HYDROCHLOROTHIAZIDE [Concomitant]

REACTIONS (6)
  - CRYING [None]
  - DEPRESSION [None]
  - OCULAR VASCULAR DISORDER [None]
  - SUICIDE ATTEMPT [None]
  - SYNCOPE [None]
  - WEIGHT DECREASED [None]
